FAERS Safety Report 10424806 (Version 3)
Quarter: 2014Q4

REPORT INFORMATION
  Report Type: Spontaneous
  Country: DE (occurrence: DE)
  Receive Date: 20140902
  Receipt Date: 20141030
  Transmission Date: 20150528
  Serious: Yes (Other)
  Sender: FDA-Public Use
  Company Number: DE-TEVA-504223GER

PATIENT
  Sex: Male

DRUGS (1)
  1. IRBESARTAN COMP. RATIOPHARM 300 MG/12,5 MG FILMTABLETTEN [Suspect]
     Active Substance: HYDROCHLOROTHIAZIDE\IRBESARTAN
     Indication: HYPERTENSION
     Dosage: 1 DOSAGE FORMS DAILY; 1DF: 300 MG IRBESARTAN PLUS 12.5 MG HYDROCHLOROTHIAZIDE
     Route: 048
     Dates: start: 201403

REACTIONS (3)
  - Ocular hypertension [Recovering/Resolving]
  - Visual impairment [Recovered/Resolved]
  - Product substitution issue [Recovering/Resolving]

NARRATIVE: CASE EVENT DATE: 2014
